FAERS Safety Report 5197122-7 (Version None)
Quarter: 2006Q4

REPORT INFORMATION
  Report Type: 
  Country: None (occurrence: None)
  Receive Date: 20061227
  Receipt Date: 20061213
  Transmission Date: 20070319
  Serious: Yes (Death)
  Sender: FDA-Public Use
  Company Number: 2006154266

PATIENT
  Age: 86 Year
  Sex: Female

DRUGS (1)
  1. AROMASIN [Suspect]
     Indication: NEOPLASM MALIGNANT
     Dosage: ORAL
     Route: 048
     Dates: start: 20040801, end: 20061128

REACTIONS (2)
  - CARDIAC DISORDER [None]
  - CHEST PAIN [None]
